FAERS Safety Report 7818224-X (Version None)
Quarter: 2011Q4

REPORT INFORMATION
  Report Type: 
  Country: None (occurrence: None)
  Receive Date: 20111017
  Receipt Date: 20111013
  Transmission Date: 20120403
  Serious: Yes (Death)
  Sender: FDA-Public Use
  Company Number: US-PFIZER INC-2011246328

PATIENT
  Sex: Female

DRUGS (4)
  1. COUMADIN [Suspect]
     Dosage: UNK
  2. ARICEPT [Suspect]
     Indication: DEMENTIA ALZHEIMER'S TYPE
     Dosage: 5 MG, UNK
  3. ARICEPT [Suspect]
     Dosage: 10 MG, UNK
  4. LIPITOR [Suspect]
     Dosage: UNK

REACTIONS (1)
  - DEMENTIA ALZHEIMER'S TYPE [None]
